FAERS Safety Report 9208818 (Version 2)
Quarter: 2013Q2

REPORT INFORMATION
  Report Type: Spontaneous
  Country: US (occurrence: US)
  Receive Date: 20130404
  Receipt Date: 20130503
  Transmission Date: 20140414
  Serious: No
  Sender: FDA-Public Use
  Company Number: US-PFIZER INC-2013105942

PATIENT
  Age: 78 Year
  Sex: Female
  Weight: 61.22 kg

DRUGS (3)
  1. LIPITOR [Suspect]
     Dosage: 20 MG, DAILY
     Dates: start: 2010
  2. ATENOLOL [Concomitant]
     Indication: HYPERTENSION
     Dosage: 50 MG, DAILY
  3. HYDROCHLOROTHIAZIDE WITH TRIAMTERENE [Concomitant]
     Indication: HYPERTENSION
     Dosage: [TRIAMTERENE 37.5 MG]/[HYDROCHLOROTHIAZIDE 25MG], DAILY

REACTIONS (1)
  - Nasopharyngitis [Unknown]
